FAERS Safety Report 7204712-6 (Version None)
Quarter: 2010Q4

REPORT INFORMATION
  Report Type: 
  Country: None (occurrence: None)
  Receive Date: 20101230
  Receipt Date: 20101221
  Transmission Date: 20110411
  Serious: Yes (Other)
  Sender: FDA-Public Use
  Company Number: FR-ELI_LILLY_AND_COMPANY-FR201011003841

PATIENT
  Sex: Male
  Weight: 95 kg

DRUGS (2)
  1. CYMBALTA [Suspect]
     Indication: URINARY INCONTINENCE
     Dosage: 60 MG, DAILY (1/D)
     Route: 048
     Dates: start: 20100825, end: 20101031
  2. CYMBALTA [Suspect]
     Dosage: 30 MG, DAILY (1/D)

REACTIONS (14)
  - ASTHENIA [None]
  - ATRIOVENTRICULAR BLOCK SECOND DEGREE [None]
  - DRUG WITHDRAWAL SYNDROME [None]
  - DYSPNOEA [None]
  - ELECTROCARDIOGRAM QT PROLONGED [None]
  - HEADACHE [None]
  - HEART RATE DECREASED [None]
  - HYPERTENSION [None]
  - INSOMNIA [None]
  - MALAISE [None]
  - NAUSEA [None]
  - NOREPINEPHRINE INCREASED [None]
  - OFF LABEL USE [None]
  - SERUM SEROTONIN DECREASED [None]
